FAERS Safety Report 16197872 (Version 1)
Quarter: 2019Q2

REPORT INFORMATION
  Report Type: Spontaneous
  Country: US (occurrence: US)
  Receive Date: 20190415
  Receipt Date: 20190415
  Transmission Date: 20190711
  Serious: Yes (Other)
  Sender: FDA-Public Use
  Company Number: US-PFIZER INC-2019155564

PATIENT
  Age: 62 Year
  Sex: Female

DRUGS (1)
  1. NEURONTIN [Suspect]
     Active Substance: GABAPENTIN
     Indication: PAIN
     Dosage: UNK

REACTIONS (5)
  - Drug ineffective [Unknown]
  - Malaise [Unknown]
  - Internal haemorrhage [Unknown]
  - Nervousness [Unknown]
  - Anxiety [Unknown]
